FAERS Safety Report 8259009-2 (Version None)
Quarter: 2012Q2

REPORT INFORMATION
  Report Type: 
  Country: None (occurrence: None)
  Receive Date: 20120404
  Receipt Date: 20120324
  Transmission Date: 20120825
  Serious: Yes (Other)
  Sender: FDA-Public Use
  Company Number: US-JNJFOC-20120313387

PATIENT
  Age: 5 Decade
  Sex: Male
  Weight: 99.79 kg

DRUGS (2)
  1. UNSPECIFIED NARCOTIC [Concomitant]
     Indication: PAIN
     Route: 062
  2. REMICADE [Suspect]
     Indication: PRODUCT USED FOR UNKNOWN INDICATION
     Route: 042
     Dates: start: 20110101

REACTIONS (10)
  - INFUSION RELATED REACTION [None]
  - THROAT TIGHTNESS [None]
  - ASTHENIA [None]
  - DECREASED APPETITE [None]
  - FEELING ABNORMAL [None]
  - INSOMNIA [None]
  - DYSPNOEA [None]
  - FATIGUE [None]
  - PRESYNCOPE [None]
  - BLOOD TESTOSTERONE DECREASED [None]
